FAERS Safety Report 20752292 (Version 2)
Quarter: 2024Q3

REPORT INFORMATION
  Report Type: Spontaneous
  Country: FR (occurrence: FR)
  Receive Date: 20220426
  Receipt Date: 20240802
  Transmission Date: 20241016
  Serious: Yes (Other)
  Sender: ROCHE
  Company Number: FR-SEATTLE GENETICS-2022SGN03500

PATIENT
  Sex: Female

DRUGS (6)
  1. TRASTUZUMAB [Suspect]
     Active Substance: TRASTUZUMAB
     Indication: Metastases to central nervous system
     Route: 065
  2. TRASTUZUMAB [Suspect]
     Active Substance: TRASTUZUMAB
     Indication: Breast cancer metastatic
     Route: 065
  3. CAPECITABINE [Suspect]
     Active Substance: CAPECITABINE
     Indication: Breast cancer metastatic
     Route: 065
  4. CAPECITABINE [Suspect]
     Active Substance: CAPECITABINE
     Indication: Metastases to central nervous system
     Route: 065
  5. TUKYSA [Suspect]
     Active Substance: TUCATINIB
     Indication: Metastases to central nervous system
     Route: 065
  6. TUKYSA [Suspect]
     Active Substance: TUCATINIB
     Indication: Breast cancer metastatic
     Route: 065

REACTIONS (1)
  - Haemorrhagic cerebellar infarction [Unknown]
